FAERS Safety Report 18130105 (Version 1)
Quarter: 2020Q3

REPORT INFORMATION
  Report Type: Spontaneous
  Country: US (occurrence: US)
  Receive Date: 20200810
  Receipt Date: 20200810
  Transmission Date: 20201103
  Serious: No
  Sender: FDA-Public Use
  Company Number: US-009507513-2008USA001974

PATIENT
  Age: 63 Year
  Sex: Male

DRUGS (9)
  1. DABRAFENIB [Concomitant]
     Active Substance: DABRAFENIB
     Dosage: UNK
  2. TEMODAR [Suspect]
     Active Substance: TEMOZOLOMIDE
     Indication: METASTATIC MALIGNANT MELANOMA
     Dosage: UNK
     Route: 048
     Dates: end: 2017
  3. KEYTRUDA [Concomitant]
     Active Substance: PEMBROLIZUMAB
     Indication: METASTATIC MALIGNANT MELANOMA
     Dosage: 12 WEEKS OF PEMBROLIZUMAB
  4. DABRAFENIB [Concomitant]
     Active Substance: DABRAFENIB
     Indication: METASTATIC MALIGNANT MELANOMA
     Dosage: 10 MONTHS OF THERAPY
  5. TRAMETINIB [Concomitant]
     Active Substance: TRAMETINIB
     Indication: METASTATIC MALIGNANT MELANOMA
     Dosage: 10 MONTHS OF THERAPY
  6. TRAMETINIB [Concomitant]
     Active Substance: TRAMETINIB
     Dosage: UNK
  7. NIVOLUMAB [Concomitant]
     Active Substance: NIVOLUMAB
     Indication: METASTATIC MALIGNANT MELANOMA
     Dosage: UNK
     Dates: start: 201606
  8. IPILIMUMAB [Concomitant]
     Active Substance: IPILIMUMAB
     Indication: METASTATIC MALIGNANT MELANOMA
     Dosage: 1 MILLIGRAM/KILOGRAM DOSE
     Dates: start: 201606
  9. ABEMACICLIB [Concomitant]
     Active Substance: ABEMACICLIB
     Indication: METASTATIC MALIGNANT MELANOMA
     Dosage: 18 WEEKS INTO THERAPY
     Dates: start: 201609

REACTIONS (1)
  - Product use in unapproved indication [Unknown]
